FAERS Safety Report 24121458 (Version 1)
Quarter: 2024Q3

REPORT INFORMATION
  Report Type: Report from Study
  Country: US (occurrence: US)
  Receive Date: 20240722
  Receipt Date: 20240722
  Transmission Date: 20241017
  Serious: Yes (Other)
  Sender: ABBVIE
  Company Number: US-ABBVIE-5613113

PATIENT
  Sex: Female

DRUGS (2)
  1. SKYRIZI [Suspect]
     Active Substance: RISANKIZUMAB-RZAA
     Indication: Psoriasis
     Route: 058
  2. SKYRIZI [Suspect]
     Active Substance: RISANKIZUMAB-RZAA
     Route: 058
     Dates: start: 20240127

REACTIONS (7)
  - Foot fracture [Unknown]
  - General physical health deterioration [Unknown]
  - Alopecia [Unknown]
  - Skin lesion [Unknown]
  - Nausea [Unknown]
  - Illness [Recovered/Resolved]
  - Feeling hot [Unknown]
